FAERS Safety Report 23773737 (Version 1)
Quarter: 2024Q2

REPORT INFORMATION
  Report Type: Spontaneous
  Country: US (occurrence: US)
  Receive Date: 20240423
  Receipt Date: 20240423
  Transmission Date: 20240715
  Serious: No
  Sender: FDA-Public Use
  Company Number: US-BAUSCH-BL-2024-006290

PATIENT
  Sex: Female

DRUGS (1)
  1. XIFAXAN [Suspect]
     Active Substance: RIFAXIMIN
     Indication: Product used for unknown indication
     Dosage: TOOK XIFAXAN ONE ROUND
     Route: 065
     Dates: start: 202306, end: 202306

REACTIONS (2)
  - Ill-defined disorder [Unknown]
  - Symptom recurrence [Unknown]
